FAERS Safety Report 16560547 (Version 2)
Quarter: 2021Q2

REPORT INFORMATION
  Report Type: Other
  Country: SA (occurrence: SA)
  Receive Date: 20190711
  Receipt Date: 20210610
  Transmission Date: 20210716
  Serious: Yes (Other)
  Sender: FDA-Public Use
  Company Number: SA-ROCHE-2353674

PATIENT
  Sex: Female

DRUGS (18)
  1. PREDNISONE. [Concomitant]
     Active Substance: PREDNISONE
     Route: 064
  2. AZATHIOPRINE. [Concomitant]
     Active Substance: AZATHIOPRINE
     Route: 064
  3. PACKED RED BLOOD CELL [Concomitant]
     Active Substance: HUMAN RED BLOOD CELL
     Dosage: 2 UNITS
     Route: 064
  4. PREDNISONE. [Concomitant]
     Active Substance: PREDNISONE
     Route: 064
  5. PACKED RED BLOOD CELL [Concomitant]
     Active Substance: HUMAN RED BLOOD CELL
     Route: 064
  6. PACKED RED BLOOD CELL [Concomitant]
     Active Substance: HUMAN RED BLOOD CELL
     Dosage: 1
     Route: 064
  7. PREDNISONE. [Concomitant]
     Active Substance: PREDNISONE
     Route: 064
  8. PREDNISONE. [Concomitant]
     Active Substance: PREDNISONE
     Route: 064
  9. PACKED RED BLOOD CELL [Concomitant]
     Active Substance: HUMAN RED BLOOD CELL
     Dosage: 15 UNITS
     Route: 064
  10. PACKED RED BLOOD CELL [Concomitant]
     Active Substance: HUMAN RED BLOOD CELL
     Dosage: 7 UNITS
     Route: 064
  11. PACKED RED BLOOD CELL [Concomitant]
     Active Substance: HUMAN RED BLOOD CELL
     Dosage: 2 UNITS
     Route: 064
  12. PREDNISONE. [Concomitant]
     Active Substance: PREDNISONE
     Route: 064
  13. HUMAN IMMUNOGLOBULIN [Concomitant]
     Dosage: 2 DOSES
     Route: 064
  14. PACKED RED BLOOD CELL [Concomitant]
     Active Substance: HUMAN RED BLOOD CELL
     Dosage: 2 UNITS
     Route: 064
  15. PACKED RED BLOOD CELL [Concomitant]
     Active Substance: HUMAN RED BLOOD CELL
     Dosage: 3 UNITS
     Route: 064
  16. PREDNISONE. [Concomitant]
     Active Substance: PREDNISONE
     Route: 064
  17. PREDNISONE. [Concomitant]
     Active Substance: PREDNISONE
     Route: 064
  18. RITUXIMAB. [Suspect]
     Active Substance: RITUXIMAB
     Indication: PRODUCT USED FOR UNKNOWN INDICATION
     Dosage: 4 DOSES
     Route: 064

REACTIONS (2)
  - Pericardial effusion [Recovered/Resolved]
  - Foetal exposure during pregnancy [Unknown]
